FAERS Safety Report 21860201 (Version 1)
Quarter: 2023Q1

REPORT INFORMATION
  Report Type: Spontaneous
  Country: US (occurrence: None)
  Receive Date: 20230113
  Receipt Date: 20230113
  Transmission Date: 20230418
  Serious: Yes (Hospitalization)
  Sender: FDA-Public Use
  Company Number: None

PATIENT
  Age: 43 Year
  Sex: Male

DRUGS (1)
  1. NAPROXEN [Suspect]
     Active Substance: NAPROXEN
     Indication: Pain
     Route: 048
     Dates: start: 20220521, end: 20220908

REACTIONS (3)
  - Hypertension [None]
  - Headache [None]
  - Product use issue [None]

NARRATIVE: CASE EVENT DATE: 20221114
